FAERS Safety Report 7742668-8 (Version None)
Quarter: 2011Q3

REPORT INFORMATION
  Report Type: 
  Country: None (occurrence: None)
  Receive Date: 20110912
  Receipt Date: 20110902
  Transmission Date: 20111222
  Serious: Yes (Other)
  Sender: FDA-Public Use
  Company Number: US-ASTRAZENECA-2011SE53425

PATIENT
  Age: 55 Year
  Sex: Male
  Weight: 62.6 kg

DRUGS (1)
  1. NEXIUM [Suspect]
     Indication: GASTROOESOPHAGEAL REFLUX DISEASE
     Route: 048
     Dates: start: 20030101, end: 20110501

REACTIONS (4)
  - RENAL FAILURE CHRONIC [None]
  - MUSCULAR WEAKNESS [None]
  - BACK PAIN [None]
  - SPINAL FRACTURE [None]
